FAERS Safety Report 15996396 (Version 2)
Quarter: 2019Q1

REPORT INFORMATION
  Report Type: Report from Study
  Country: None (occurrence: DE)
  Receive Date: 20190222
  Receipt Date: 20190326
  Transmission Date: 20190418
  Serious: No
  Sender: FDA-Public Use
  Company Number: DE-ABBVIE-19K-062-2673829-00

PATIENT
  Age: 25 Year
  Sex: Female

DRUGS (8)
  1. MAXIM [Concomitant]
     Indication: CONTRACEPTION
     Dosage: 0.030/2MG
     Route: 048
  2. BISOPROLOL [Concomitant]
     Active Substance: BISOPROLOL
     Indication: HYPERTENSION
     Dosage: UNIT DOSE: 2.5 MILLIGRAM
     Dates: start: 2015
  3. HUMIRA [Suspect]
     Active Substance: ADALIMUMAB
     Indication: PSORIASIS
     Route: 058
     Dates: start: 20180717
  4. PERAZIN [Concomitant]
     Active Substance: PERAZINE
     Indication: SCHIZOPHRENIA
     Route: 048
  5. ABILIFY [Concomitant]
     Active Substance: ARIPIPRAZOLE
     Indication: SCHIZOPHRENIA
     Dosage: MORE THAN 10 MG
  6. ABILIFY [Concomitant]
     Active Substance: ARIPIPRAZOLE
     Route: 048
  7. REAGILA [Concomitant]
     Active Substance: CARIPRAZINE
     Indication: SCHIZOPHRENIA
     Route: 048
     Dates: start: 20181108
  8. TRUXAL [Concomitant]
     Active Substance: CHLORPROTHIXENE
     Indication: DEPRESSION
     Dosage: 15MG-0-30MG
     Dates: start: 20181113

REACTIONS (1)
  - Schizophrenia [Not Recovered/Not Resolved]

NARRATIVE: CASE EVENT DATE: 20181127
